FAERS Safety Report 9090332 (Version 5)
Quarter: 2013Q1

REPORT INFORMATION
  Report Type: Spontaneous
  Country: US (occurrence: US)
  Receive Date: 20130201
  Receipt Date: 20130329
  Transmission Date: 20140127
  Serious: Yes (Other)
  Sender: FDA-Public Use
  Company Number: US-PFIZER INC-2013042416

PATIENT
  Age: 58 Year
  Sex: Female
  Weight: 97.51 kg

DRUGS (18)
  1. LYRICA [Suspect]
     Indication: FIBROMYALGIA
     Dosage: 75 MG, 2X/DAY
     Route: 048
     Dates: start: 2010
  2. LYRICA [Suspect]
     Dosage: 75MG DAILY
     Dates: start: 20130101
  3. NEURONTIN [Suspect]
     Indication: ARTHRITIS
     Dosage: 600 MG, 3X/DAY
  4. NEURONTIN [Suspect]
     Indication: RESTLESS LEGS SYNDROME
  5. NEURONTIN [Suspect]
     Indication: FIBROMYALGIA
  6. TRAMADOL [Concomitant]
     Indication: ARTHRITIS
     Dosage: 50 MG, 2X/DAY
  7. TRAMADOL [Concomitant]
     Indication: RESTLESS LEGS SYNDROME
  8. PROTONIX [Concomitant]
     Indication: GASTROOESOPHAGEAL REFLUX DISEASE
     Dosage: 40 MG DAILY
     Route: 048
     Dates: start: 20130219
  9. ALLOPURINOL [Concomitant]
     Indication: GOUT
     Dosage: 100 MG DAILY
     Route: 048
     Dates: start: 20121030
  10. LOTRISONE [Concomitant]
     Dosage: [CLOTRIMAZOLE 1%/BETAMETH 0.05%] 45GM CREAM, AS NEEDED
  11. FUROSEMIDE [Concomitant]
     Dosage: 20 MG DAILY
     Route: 048
  12. ROPINIROLE HYDROCHLORIDE [Concomitant]
     Indication: RESTLESS LEGS SYNDROME
     Dosage: 4 MG, 1X/DAY (QHS)
     Route: 048
     Dates: start: 20121203
  13. EFEXOR XR [Concomitant]
     Indication: DEPRESSION
     Dosage: 150 MG DAILY
     Route: 048
     Dates: start: 20130129
  14. POTASSIUM [Concomitant]
     Dosage: UNK
  15. MAGNESIUM [Concomitant]
     Dosage: UNK
  16. LASIX [Concomitant]
     Dosage: 20 MG, UNK
  17. OMEPRAZOLE [Concomitant]
     Dosage: UNK
  18. REQUIP [Concomitant]
     Dosage: UNK

REACTIONS (5)
  - Fall [Unknown]
  - Humerus fracture [Unknown]
  - Intentional drug misuse [Unknown]
  - Off label use [Unknown]
  - Drug ineffective for unapproved indication [Unknown]
